FAERS Safety Report 5664700-8 (Version None)
Quarter: 2008Q1

REPORT INFORMATION
  Report Type: 
  Country: None (occurrence: None)
  Receive Date: 20080314
  Receipt Date: 20080305
  Transmission Date: 20080703
  Serious: Yes (Other)
  Sender: FDA-Public Use
  Company Number: US-BAYER-200810966BCC

PATIENT
  Age: 40 Year
  Sex: Female

DRUGS (1)
  1. ALEVE (CAPLET) [Suspect]
     Indication: SUICIDE ATTEMPT
     Route: 048
     Dates: start: 20080305

REACTIONS (1)
  - VOMITING [None]
